FAERS Safety Report 8518214-8 (Version None)
Quarter: 2012Q3

REPORT INFORMATION
  Report Type: 
  Country: None (occurrence: None)
  Receive Date: 20120718
  Receipt Date: 20111109
  Transmission Date: 20120928
  Serious: No
  Sender: FDA-Public Use
  Company Number: US-BRISTOL-MYERS SQUIBB COMPANY-16223521

PATIENT
  Sex: Female

DRUGS (1)
  1. COUMADIN [Suspect]
     Dosage: 1 DF:1 TAB

REACTIONS (1)
  - MEDICATION ERROR [None]
